FAERS Safety Report 11646146 (Version 1)
Quarter: 2015Q4

REPORT INFORMATION
  Report Type: Spontaneous
  Country: US (occurrence: US)
  Receive Date: 20151020
  Receipt Date: 20151020
  Transmission Date: 20160304
  Serious: Yes (Other)
  Sender: FDA-Public Use
  Company Number: US-ROCHE-1605265

PATIENT
  Age: 75 Year
  Sex: Male
  Weight: 74.91 kg

DRUGS (7)
  1. ESBRIET [Suspect]
     Active Substance: PIRFENIDONE
     Indication: IDIOPATHIC PULMONARY FIBROSIS
     Dosage: 9 CAPSULES DAILY
     Route: 048
     Dates: start: 20150320
  2. ESBRIET [Suspect]
     Active Substance: PIRFENIDONE
     Dosage: 7 CAPSULES
     Route: 048
  3. ESBRIET [Suspect]
     Active Substance: PIRFENIDONE
     Dosage: 534 MG AM + AFTERNOON, 801 MG HS; TOTAL OF 1869 MG DAILY
     Route: 048
     Dates: start: 20150603
  4. NTG [Concomitant]
     Active Substance: NITROGLYCERIN
  5. ALLOPURINOL. [Concomitant]
     Active Substance: ALLOPURINOL
  6. OMEPRAZOLE. [Concomitant]
     Active Substance: OMEPRAZOLE
  7. ASA [Concomitant]
     Active Substance: ASPIRIN

REACTIONS (3)
  - Dizziness [Recovering/Resolving]
  - Fatigue [Unknown]
  - Rash [Unknown]

NARRATIVE: CASE EVENT DATE: 201506
